FAERS Safety Report 20237166 (Version 1)
Quarter: 2021Q4

REPORT INFORMATION
  Report Type: Spontaneous
  Country: US (occurrence: US)
  Receive Date: 20211228
  Receipt Date: 20211228
  Transmission Date: 20220303
  Serious: Yes (Other)
  Sender: FDA-Public Use
  Company Number: US-GLAXOSMITHKLINE-US2020GSK191053

PATIENT
  Age: 78 Year
  Sex: Female

DRUGS (7)
  1. SHINGRIX [Suspect]
     Active Substance: RECOMBINANT VARICELLA ZOSTER VIRUS (VZV) GLYCOPROTEIN E
     Indication: Prophylaxis
  2. VALACYCLOVIR [Suspect]
     Active Substance: VALACYCLOVIR HYDROCHLORIDE
     Indication: Ophthalmic herpes zoster
     Dosage: 1000 MG, TID
     Route: 048
  3. VALACYCLOVIR [Suspect]
     Active Substance: VALACYCLOVIR HYDROCHLORIDE
     Indication: Keratitis
  4. ERYTHROMYCIN [Suspect]
     Active Substance: ERYTHROMYCIN
     Indication: Ophthalmic herpes zoster
     Dosage: EVERY 4H
     Route: 061
  5. ERYTHROMYCIN [Suspect]
     Active Substance: ERYTHROMYCIN
     Indication: Keratitis
  6. CIPROFLOXACIN [Suspect]
     Active Substance: CIPROFLOXACIN
     Indication: Ophthalmic herpes zoster
  7. CIPROFLOXACIN [Suspect]
     Active Substance: CIPROFLOXACIN
     Indication: Keratitis

REACTIONS (9)
  - Ophthalmic herpes zoster [Recovered/Resolved]
  - Ulcerative keratitis [Recovered/Resolved]
  - Keratitis [Recovered/Resolved]
  - Eye ulcer [Recovered/Resolved]
  - Pain [Recovered/Resolved]
  - Photophobia [Recovered/Resolved]
  - Corneal oedema [Recovered/Resolved]
  - Corneal thinning [Recovered/Resolved]
  - Drug ineffective [Unknown]
